FAERS Safety Report 9220144 (Version 3)
Quarter: 2013Q2

REPORT INFORMATION
  Report Type: Spontaneous
  Country: CA (occurrence: CA)
  Receive Date: 20130409
  Receipt Date: 20130424
  Transmission Date: 20140414
  Serious: No
  Sender: FDA-Public Use
  Company Number: CA-B.I. PHARMACEUTICALS,INC./RIDGEFIELD-2013-CN-00538CN

PATIENT
  Age: 62 Year
  Sex: Female

DRUGS (1)
  1. TRAJENTA [Suspect]
     Indication: TYPE 2 DIABETES MELLITUS
     Dosage: 5 MG
     Route: 048
     Dates: start: 20130212, end: 20130219

REACTIONS (2)
  - Blister [Not Recovered/Not Resolved]
  - Rash [Not Recovered/Not Resolved]
